FAERS Safety Report 4594626-2 (Version None)
Quarter: 2005Q1

REPORT INFORMATION
  Report Type: 
  Country: None (occurrence: None)
  Receive Date: 20050301
  Receipt Date: 20041108
  Transmission Date: 20050727
  Serious: No
  Sender: FDA-Public Use
  Company Number: US-BRISTOL-MYERS SQUIBB COMPANY-12759759

PATIENT
  Age: 61 Year
  Sex: Male
  Weight: 111 kg

DRUGS (4)
  1. ERBITUX [Suspect]
     Indication: COLON CANCER METASTATIC
     Dosage: START DATE 02-NOV-04, 2ND DOSE 250 MG/M2 (565 MG) 08-NOV-04
     Route: 042
     Dates: start: 20041102, end: 20041102
  2. IRINOTECAN HCL [Concomitant]
  3. PREVACID [Concomitant]
  4. MULTI-VITAMIN [Concomitant]

REACTIONS (1)
  - DERMATITIS ACNEIFORM [None]
